FAERS Safety Report 7341831-8 (Version None)
Quarter: 2011Q1

REPORT INFORMATION
  Report Type: 
  Country: None (occurrence: None)
  Receive Date: 20110309
  Receipt Date: 20110224
  Transmission Date: 20110831
  Serious: Yes (Other)
  Sender: FDA-Public Use
  Company Number: GB-ELI_LILLY_AND_COMPANY-GB201103000060

PATIENT
  Sex: Male

DRUGS (2)
  1. CYMBALTA [Suspect]
     Indication: NEURALGIA
  2. CITALOPRAM [Concomitant]
     Indication: DEPRESSION

REACTIONS (2)
  - PSYCHOTIC DISORDER [None]
  - OFF LABEL USE [None]
